FAERS Safety Report 4436134-5 (Version None)
Quarter: 2004Q3

REPORT INFORMATION
  Report Type: 
  Country: None (occurrence: None)
  Receive Date: 20040728
  Receipt Date: 20040518
  Transmission Date: 20050211
  Serious: Yes (Hospitalization)
  Sender: FDA-Public Use
  Company Number: 206459

PATIENT
  Age: 85 Year
  Sex: Female
  Weight: 65.8 kg

DRUGS (8)
  1. RITUXAN [Suspect]
     Indication: LYMPHOMA
     Dosage: 645 MG, 1/WEEK, INTRAVENOUS
     Route: 042
     Dates: start: 20040407, end: 20040407
  2. RITUXAN [Suspect]
     Dosage: 645 MG
     Dates: start: 20040414, end: 20040414
  3. RITUXAN [Suspect]
     Dosage: 645 MG
     Dates: start: 20040422, end: 20040422
  4. COZAAR [Concomitant]
  5. ASCRIPTIN (MAGNESIUM HYDROXIDE, CALCIUM CARBONATE, ASPIRIN, ALUMINUM H [Concomitant]
  6. PRILOSEC [Concomitant]
  7. VIOXX [Concomitant]
  8. AMBIEN [Concomitant]

REACTIONS (5)
  - CHEST PAIN [None]
  - DYSPNOEA [None]
  - HAEMOGLOBIN DECREASED [None]
  - PLATELET COUNT DECREASED [None]
  - WHITE BLOOD CELL COUNT DECREASED [None]
